FAERS Safety Report 5857091-0 (Version None)
Quarter: 2008Q3

REPORT INFORMATION
  Report Type: 
  Country: None (occurrence: None)
  Receive Date: 20080825
  Receipt Date: 20080818
  Transmission Date: 20090109
  Serious: Yes (Hospitalization)
  Sender: FDA-Public Use
  Company Number: FR-BOEHRINGER INGELHEIM GMBH, GERMANY-2008-FF-00597FF

PATIENT
  Sex: Male

DRUGS (4)
  1. MICARDIS HCT [Suspect]
     Indication: SUICIDE ATTEMPT
     Route: 048
     Dates: start: 20080630, end: 20080630
  2. MS CONTIN [Suspect]
     Indication: SUICIDE ATTEMPT
     Route: 048
     Dates: start: 20080630, end: 20080630
  3. TAHOR [Concomitant]
     Indication: SUICIDE ATTEMPT
     Route: 048
     Dates: start: 20080630, end: 20080630
  4. NOVONORM [Concomitant]
     Indication: SUICIDE ATTEMPT
     Route: 048
     Dates: start: 20080630, end: 20080630

REACTIONS (2)
  - COMA [None]
  - DRUG ABUSE [None]
